FAERS Safety Report 10535301 (Version 5)
Quarter: 2015Q2

REPORT INFORMATION
  Report Type: Spontaneous
  Country: US (occurrence: US)
  Receive Date: 20141022
  Receipt Date: 20150602
  Transmission Date: 20150821
  Serious: Yes (Hospitalization, Other)
  Sender: FDA-Public Use
  Company Number: US-GLAXOSMITHKLINE-US2014GSK009441

PATIENT
  Age: 43 Year
  Sex: Female

DRUGS (6)
  1. TAFINLAR [Suspect]
     Active Substance: DABRAFENIB MESYLATE
     Indication: MALIGNANT MELANOMA
     Dosage: 75 MG, U
  2. TAFINLAR [Suspect]
     Active Substance: DABRAFENIB MESYLATE
     Dosage: 150 MG, QD
     Route: 048
     Dates: start: 20150428
  3. TAFINLAR [Suspect]
     Active Substance: DABRAFENIB MESYLATE
     Indication: SKIN CANCER
     Dosage: 150 MG, BID
     Route: 048
  4. MEKINIST [Suspect]
     Active Substance: TRAMETINIB DIMETHYL SULFOXIDE
     Indication: SKIN CANCER
     Dosage: 2 MG, QD
     Route: 048
  5. MEKINIST [Suspect]
     Active Substance: TRAMETINIB DIMETHYL SULFOXIDE
     Indication: MALIGNANT MELANOMA
     Dosage: 2 MG, U
     Dates: start: 20150428
  6. MEKINIST [Suspect]
     Active Substance: TRAMETINIB DIMETHYL SULFOXIDE
     Dosage: 20 MG, QD
     Route: 048
     Dates: start: 20150428

REACTIONS (6)
  - Malignant neoplasm progression [Not Recovered/Not Resolved]
  - Paraplegia [Not Recovered/Not Resolved]
  - Abdominal discomfort [Unknown]
  - Paraesthesia [Unknown]
  - Neoplasm [Unknown]
  - Urticaria [Unknown]

NARRATIVE: CASE EVENT DATE: 20140908
